FAERS Safety Report 4365449-4 (Version None)
Quarter: 2004Q2

REPORT INFORMATION
  Report Type: 
  Country: None (occurrence: None)
  Receive Date: 20040525
  Receipt Date: 20040525
  Transmission Date: 20050107
  Serious: Yes (Hospitalization)
  Sender: FDA-Public Use
  Company Number: None

PATIENT
  Age: 24 Year
  Sex: Male
  Weight: 76.2 kg

DRUGS (8)
  1. NAPROXEN [Suspect]
     Indication: TOOTHACHE
     Dosage: NEVER GIVEN
  2. IBUPROFEN [Suspect]
     Indication: TOOTHACHE
  3. ASPIRIN [Suspect]
  4. AMOXICILLIN [Concomitant]
  5. ACIPHEX [Concomitant]
  6. LEXAPRO [Concomitant]
  7. CELEXA [Concomitant]
  8. IMITREX [Concomitant]

REACTIONS (2)
  - HAEMATEMESIS [None]
  - MELAENA [None]
